FAERS Safety Report 4292992-9 (Version None)
Quarter: 2004Q1

REPORT INFORMATION
  Report Type: 
  Country: None (occurrence: None)
  Receive Date: 20040210
  Receipt Date: 20040204
  Transmission Date: 20041129
  Serious: Yes (Hospitalization)
  Sender: FDA-Public Use
  Company Number: ES-JNJFOC-20040105345

PATIENT
  Age: 72 Year
  Sex: Male

DRUGS (1)
  1. DURAGESIC [Suspect]
     Indication: PAIN IN EXTREMITY
     Dosage: 25 MG, TRANSDERMAL
     Route: 062
     Dates: start: 20030101

REACTIONS (20)
  - ANAEMIA [None]
  - APNOEA [None]
  - CONSTIPATION [None]
  - CYANOSIS [None]
  - DEPRESSED LEVEL OF CONSCIOUSNESS [None]
  - DIARRHOEA [None]
  - DIFFICULTY IN WALKING [None]
  - DISORIENTATION [None]
  - DYSPNOEA [None]
  - GASTROINTESTINAL HAEMORRHAGE [None]
  - HAEMATOCRIT ABNORMAL [None]
  - HAEMOGLOBIN DECREASED [None]
  - HYPERHIDROSIS [None]
  - LEUKOCYTOSIS [None]
  - PAIN [None]
  - RENAL FAILURE [None]
  - RESPIRATORY FAILURE [None]
  - RESTLESSNESS [None]
  - RHONCHI [None]
  - SOMNOLENCE [None]
